FAERS Safety Report 5545538-9 (Version None)
Quarter: 2007Q4

REPORT INFORMATION
  Report Type: 
  Country: None (occurrence: None)
  Receive Date: 20071211
  Receipt Date: 20070126
  Transmission Date: 20080405
  Serious: No
  Sender: FDA-Public Use
  Company Number: US-AMGEN-KDL208752

PATIENT
  Sex: Female

DRUGS (1)
  1. ENBREL [Suspect]
     Indication: PSORIATIC ARTHROPATHY
     Dates: start: 20060801, end: 20070110

REACTIONS (3)
  - MALAISE [None]
  - NEUROLOGICAL SYMPTOM [None]
  - WHITE BLOOD CELL COUNT DECREASED [None]
